FAERS Safety Report 5057020-6 (Version None)
Quarter: 2006Q3

REPORT INFORMATION
  Report Type: 
  Country: None (occurrence: None)
  Receive Date: 20060721
  Receipt Date: 20041125
  Transmission Date: 20061208
  Serious: Yes (Other)
  Sender: FDA-Public Use
  Company Number: JP-AVENTIS-200612211JP

PATIENT
  Age: 28 Year
  Sex: Female
  Weight: 75 kg

DRUGS (15)
  1. ARAVA [Suspect]
     Indication: RHEUMATOID ARTHRITIS
     Route: 048
     Dates: start: 20040608, end: 20040809
  2. ARAVA [Suspect]
     Route: 048
     Dates: start: 20040810, end: 20040818
  3. ARAVA [Suspect]
     Route: 048
     Dates: start: 20040819, end: 20041001
  4. ARAVA [Suspect]
     Route: 048
     Dates: start: 20041002, end: 20041213
  5. ARAVA [Suspect]
     Route: 048
     Dates: start: 20050423, end: 20050814
  6. CELESTONE [Concomitant]
     Indication: RHEUMATOID ARTHRITIS
     Route: 048
     Dates: start: 20040313, end: 20040731
  7. METALCAPTASE [Concomitant]
     Indication: RHEUMATOID ARTHRITIS
     Route: 048
     Dates: start: 20040214, end: 20040703
  8. PYDOXAL [Concomitant]
     Indication: PROPHYLAXIS
     Route: 048
     Dates: start: 20040214, end: 20040703
  9. THEO-DUR [Concomitant]
     Indication: ASTHMA
     Route: 048
  10. SEREVENT [Concomitant]
     Indication: ASTHMA
     Route: 055
     Dates: start: 20040601
  11. FLUTIDE [Concomitant]
     Indication: ASTHMA
     Route: 055
  12. LULLAN                                  /JPN/ [Concomitant]
     Indication: DEPRESSION
     Route: 048
  13. TASMOLIN [Concomitant]
     Indication: DEPRESSION
     Route: 048
  14. LENDORMIN [Concomitant]
     Indication: DEPRESSION
     Route: 048
  15. MELBIN [Concomitant]
     Indication: DIABETES MELLITUS
     Route: 048
     Dates: start: 20040918

REACTIONS (8)
  - ALANINE AMINOTRANSFERASE INCREASED [None]
  - ASPARTATE AMINOTRANSFERASE INCREASED [None]
  - BLOOD ALKALINE PHOSPHATASE INCREASED [None]
  - BLOOD LACTATE DEHYDROGENASE INCREASED [None]
  - GAMMA-GLUTAMYLTRANSFERASE INCREASED [None]
  - LIVER DISORDER [None]
  - PURPURA [None]
  - RASH [None]
